FAERS Safety Report 12696987 (Version 2)
Quarter: 2016Q3

REPORT INFORMATION
  Report Type: Report from Study
  Country: US (occurrence: US)
  Receive Date: 20160830
  Receipt Date: 20160831
  Transmission Date: 20161109
  Serious: Yes (Other)
  Sender: FDA-Public Use
  Company Number: US-ROCHE-ITM201502IM009841

PATIENT
  Age: 69 Year
  Sex: Male
  Weight: 68.1 kg

DRUGS (7)
  1. REMODULIN [Concomitant]
     Active Substance: TREPROSTINIL
  2. ASPIRIN. [Concomitant]
     Active Substance: ASPIRIN
  3. ADCIRCA [Concomitant]
     Active Substance: TADALAFIL
     Route: 048
  4. TRACLEER [Concomitant]
     Active Substance: BOSENTAN
  5. ESBRIET [Suspect]
     Active Substance: PIRFENIDONE
     Indication: IDIOPATHIC PULMONARY FIBROSIS
     Dosage: 2403 MG
     Route: 048
     Dates: start: 20141212
  6. FLOLAN [Concomitant]
     Active Substance: EPOPROSTENOL SODIUM
  7. ESBRIET [Suspect]
     Active Substance: PIRFENIDONE
     Dosage: 2 CAPSULES TID AND THEN 3 CAPS TID
     Route: 048

REACTIONS (1)
  - International normalised ratio decreased [Unknown]

NARRATIVE: CASE EVENT DATE: 20141212
